FAERS Safety Report 7679065-X (Version None)
Quarter: 2011Q3

REPORT INFORMATION
  Report Type: 
  Country: None (occurrence: None)
  Receive Date: 20110812
  Receipt Date: 20110802
  Transmission Date: 20111222
  Serious: Yes (Hospitalization)
  Sender: FDA-Public Use
  Company Number: US-AMGEN-USASP2011039331

PATIENT
  Sex: Male

DRUGS (1)
  1. XGEVA [Suspect]
     Indication: METASTASES TO BONE
     Dates: start: 20110501, end: 20110601

REACTIONS (3)
  - RENAL IMPAIRMENT [None]
  - VITAMIN D DECREASED [None]
  - HYPOCALCAEMIA [None]
